FAERS Safety Report 7032398-2 (Version None)
Quarter: 2010Q4

REPORT INFORMATION
  Report Type: 
  Country: None (occurrence: None)
  Receive Date: 20101001
  Receipt Date: 20100922
  Transmission Date: 20110411
  Serious: Yes (Hospitalization, Other)
  Sender: FDA-Public Use
  Company Number: 019183

PATIENT
  Sex: Female
  Weight: 58.514 kg

DRUGS (13)
  1. ROTIGOTINE [Suspect]
     Indication: RESTLESS LEGS SYNDROME
     Dosage: (4 MG 1X/24 HOURS TRANSDERMAL)
     Route: 062
  2. DOCUSATE [Concomitant]
  3. SINEMET [Concomitant]
  4. TYLENOL (CAPLET) [Concomitant]
  5. PREDNISONE [Concomitant]
  6. OXYCODONE [Concomitant]
  7. OMEPRAZOLE [Concomitant]
  8. ATENOLOL [Concomitant]
  9. HYDRALAZINE [Concomitant]
  10. ICAPS [Concomitant]
  11. CENTRUM /00554501/ [Concomitant]
  12. PREMARIN [Concomitant]
  13. VITAMIN D [Concomitant]

REACTIONS (5)
  - BACK PAIN [None]
  - BEDRIDDEN [None]
  - COMPRESSION FRACTURE [None]
  - FALL [None]
  - THORACIC VERTEBRAL FRACTURE [None]
